FAERS Safety Report 15882925 (Version 1)
Quarter: 2019Q1

REPORT INFORMATION
  Report Type: Spontaneous
  Country: US (occurrence: US)
  Receive Date: 20190106
  Receipt Date: 20190106
  Transmission Date: 20190417
  Serious: Yes (Life-Threatening, Other)
  Sender: FDA-Public Use
  Company Number: None

PATIENT
  Age: 49 Year
  Sex: Male
  Weight: 81 kg

DRUGS (1)
  1. KLONOPIN [Suspect]
     Active Substance: CLONAZEPAM
     Indication: ANXIETY
     Dates: start: 20100101

REACTIONS (5)
  - Drug withdrawal syndrome [None]
  - Depersonalisation/derealisation disorder [None]
  - Nerve injury [None]
  - Influenza like illness [None]
  - Derealisation [None]

NARRATIVE: CASE EVENT DATE: 20150102
